FAERS Safety Report 8585823-X (Version None)
Quarter: 2012Q3

REPORT INFORMATION
  Report Type: 
  Country: None (occurrence: None)
  Receive Date: 20120810
  Receipt Date: 20120731
  Transmission Date: 20120928
  Serious: Yes (Other)
  Sender: FDA-Public Use
  Company Number: US-BAYER-2012-045820

PATIENT
  Age: 23 Year
  Sex: Female

DRUGS (2)
  1. YAZ [Suspect]
     Indication: CONTRACEPTION
  2. YASMIN [Suspect]
     Indication: CONTRACEPTION

REACTIONS (9)
  - INJURY [None]
  - ANXIETY [None]
  - CEREBROVASCULAR ACCIDENT [None]
  - PAIN [None]
  - EMOTIONAL DISTRESS [None]
  - QUALITY OF LIFE DECREASED [None]
  - TRANSIENT ISCHAEMIC ATTACK [None]
  - FEAR [None]
  - ANHEDONIA [None]
